FAERS Safety Report 21480699 (Version 1)
Quarter: 2022Q4

REPORT INFORMATION
  Report Type: Spontaneous
  Country: US (occurrence: None)
  Receive Date: 20221019
  Receipt Date: 20221019
  Transmission Date: 20230112
  Serious: Yes (unspecified)
  Sender: FDA-Public Use
  Company Number: None

PATIENT
  Age: 45 Year
  Sex: Female
  Weight: 69.75 kg

DRUGS (7)
  1. MONTELUKAST [Suspect]
     Active Substance: MONTELUKAST SODIUM
     Indication: Rhinitis allergic
     Dates: start: 20131010, end: 20221015
  2. LISINOPRIL [Concomitant]
     Active Substance: LISINOPRIL
  3. VITAMINS [Concomitant]
     Active Substance: VITAMINS
  4. CO Q10 [Concomitant]
  5. VITAMIN C [Concomitant]
     Active Substance: ASCORBIC ACID
  6. ZINC [Concomitant]
     Active Substance: ZINC
  7. ASPIRIN [Concomitant]
     Active Substance: ASPIRIN

REACTIONS (7)
  - Intrusive thoughts [None]
  - Self-injurious ideation [None]
  - Abnormal dreams [None]
  - Obsessive thoughts [None]
  - Withdrawal syndrome [None]
  - Anxiety [None]
  - Feeling jittery [None]

NARRATIVE: CASE EVENT DATE: 20221015
